FAERS Safety Report 23032027 (Version 4)
Quarter: 2025Q2

REPORT INFORMATION
  Report Type: Spontaneous
  Country: US (occurrence: US)
  Receive Date: 20231005
  Receipt Date: 20250517
  Transmission Date: 20250716
  Serious: Yes (Other)
  Sender: SANOFI AVENTIS
  Company Number: US-SA-SAC20231004000668

PATIENT
  Age: 77 Year
  Sex: Male
  Weight: 88.64 kg

DRUGS (22)
  1. DUPIXENT [Suspect]
     Active Substance: DUPILUMAB
     Indication: Dermatitis atopic
     Dosage: 300 MG, QOW
     Route: 058
     Dates: start: 20230413, end: 20240812
  2. DUPIXENT [Suspect]
     Active Substance: DUPILUMAB
     Route: 058
     Dates: start: 20241217, end: 20241217
  3. TRELEGY ELLIPTA [Concomitant]
     Active Substance: FLUTICASONE FUROATE\UMECLIDINIUM BROMIDE\VILANTEROL TRIFENATATE
  4. CRESTOR [Concomitant]
     Active Substance: ROSUVASTATIN CALCIUM
  5. JANUVIA [Concomitant]
     Active Substance: SITAGLIPTIN PHOSPHATE
  6. GABAPENTIN [Concomitant]
     Active Substance: GABAPENTIN
  7. CELEXAL [Concomitant]
  8. JARDIANCE [Concomitant]
     Active Substance: EMPAGLIFLOZIN
  9. VITAMIN D3 [Concomitant]
     Active Substance: CHOLECALCIFEROL
  10. CIALIS [Concomitant]
     Active Substance: TADALAFIL
  11. MONTELUKAST SODIUM [Concomitant]
     Active Substance: MONTELUKAST SODIUM
  12. COZAAR [Concomitant]
     Active Substance: LOSARTAN POTASSIUM
  13. FINASTERIDE [Concomitant]
     Active Substance: FINASTERIDE
  14. TESTOSTERONE [Concomitant]
     Active Substance: TESTOSTERONE
  15. ALLEGRA-D 24 HOUR [Concomitant]
     Active Substance: FEXOFENADINE HYDROCHLORIDE\PSEUDOEPHEDRINE HYDROCHLORIDE
  16. WELLBUTRIN SR [Concomitant]
     Active Substance: BUPROPION HYDROCHLORIDE
  17. Maca [Concomitant]
  18. CELEXA [Concomitant]
     Active Substance: CITALOPRAM HYDROBROMIDE
  19. CLARITIN-D 12 HOUR [Concomitant]
     Active Substance: LORATADINE\PSEUDOEPHEDRINE SULFATE
  20. PROZAC [Concomitant]
     Active Substance: FLUOXETINE HYDROCHLORIDE
  21. CLARITIN-D 12 HOUR [Concomitant]
     Active Substance: LORATADINE\PSEUDOEPHEDRINE SULFATE
  22. ZYRTEC-D [Concomitant]
     Active Substance: CETIRIZINE HYDROCHLORIDE\PSEUDOEPHEDRINE HYDROCHLORIDE

REACTIONS (10)
  - Prostate cancer [Unknown]
  - Skin cancer [Unknown]
  - COVID-19 [Recovered/Resolved]
  - Illness [Recovered/Resolved]
  - Eye infection [Unknown]
  - Upper respiratory tract infection [Unknown]
  - Productive cough [Unknown]
  - Sputum discoloured [Unknown]
  - Cough [Recovering/Resolving]
  - Viral infection [Recovering/Resolving]

NARRATIVE: CASE EVENT DATE: 20240101
